FAERS Safety Report 6604054-3 (Version None)
Quarter: 2010Q1

REPORT INFORMATION
  Report Type: 
  Country: None (occurrence: None)
  Receive Date: 20100226
  Receipt Date: 20090429
  Transmission Date: 20100710
  Serious: No
  Sender: FDA-Public Use
  Company Number: A0781285A

PATIENT
  Age: 46 Year
  Sex: Female

DRUGS (5)
  1. LAMICTAL CD [Suspect]
     Dosage: 100MG TWICE PER DAY
     Route: 048
     Dates: start: 20090201, end: 20090318
  2. LAMOTRIGINE [Suspect]
     Dosage: 25MG TWICE PER DAY
     Route: 048
     Dates: start: 20090318
  3. DILANTIN [Concomitant]
  4. LEVOTHYROXINE [Concomitant]
  5. CLONAZEPAM [Concomitant]

REACTIONS (1)
  - RASH [None]
